FAERS Safety Report 9323939 (Version 1)
Quarter: 2013Q2

REPORT INFORMATION
  Report Type: Spontaneous
  Country: FR (occurrence: FR)
  Receive Date: 20130603
  Receipt Date: 20130603
  Transmission Date: 20140414
  Serious: Yes (Hospitalization, Other)
  Sender: FDA-Public Use
  Company Number: FR-BRISTOL-MYERS SQUIBB COMPANY-18951129

PATIENT
  Age: 73 Year
  Sex: Male

DRUGS (1)
  1. COUMADINE [Suspect]
     Indication: ATRIAL FIBRILLATION
     Dosage: INT ON 17-FEB-2013: RESTARTED ON 26-FEB-2013 AT A DOSE OF 0.75 TABLET PER DAY
     Route: 048

REACTIONS (5)
  - Melaena [Recovered/Resolved]
  - Anaemia [Not Recovered/Not Resolved]
  - Haematemesis [Recovered/Resolved]
  - Mallory-Weiss syndrome [Unknown]
  - Gastric ulcer [Unknown]
